FAERS Safety Report 16753404 (Version 1)
Quarter: 2019Q3

REPORT INFORMATION
  Report Type: Spontaneous
  Country: NO (occurrence: NO)
  Receive Date: 20190829
  Receipt Date: 20190829
  Transmission Date: 20191005
  Serious: Yes (Other)
  Sender: FDA-Public Use
  Company Number: NO-ACCORD-153032

PATIENT
  Age: 32 Year
  Sex: Male
  Weight: 105 kg

DRUGS (1)
  1. QUETIAPINE ACCORD [Suspect]
     Active Substance: QUETIAPINE
     Indication: BIPOLAR DISORDER
     Dates: start: 20170324, end: 20180924

REACTIONS (7)
  - Depression [Unknown]
  - Apathy [Recovered/Resolved]
  - Social anxiety disorder [Unknown]
  - Lethargy [Unknown]
  - Fatigue [Recovered/Resolved]
  - Antisocial behaviour [Unknown]
  - Suicidal ideation [Unknown]
